FAERS Safety Report 5274755-0 (Version None)
Quarter: 2007Q1

REPORT INFORMATION
  Report Type: 
  Country: None (occurrence: None)
  Receive Date: 20070321
  Receipt Date: 20070306
  Transmission Date: 20070707
  Serious: Yes (Hospitalization)
  Sender: FDA-Public Use
  Company Number: T200700292

PATIENT
  Age: 47 Year
  Sex: Female
  Weight: 118.4 kg

DRUGS (25)
  1. METHADOSE [Suspect]
     Indication: DRUG TOLERANCE INCREASED
     Dosage: SEE IMAGE
     Route: 048
     Dates: start: 20020101, end: 20060609
  2. METHADOSE [Suspect]
     Indication: PAIN MANAGEMENT
     Dosage: SEE IMAGE
     Route: 048
     Dates: start: 20020101, end: 20060609
  3. METHADOSE [Suspect]
     Indication: DRUG TOLERANCE INCREASED
     Dosage: SEE IMAGE
     Route: 048
     Dates: start: 20060609, end: 20061127
  4. METHADOSE [Suspect]
     Indication: PAIN MANAGEMENT
     Dosage: SEE IMAGE
     Route: 048
     Dates: start: 20060609, end: 20061127
  5. METHADOSE [Suspect]
     Indication: DRUG TOLERANCE INCREASED
     Dosage: SEE IMAGE
     Route: 048
     Dates: start: 20061127
  6. METHADOSE [Suspect]
     Indication: PAIN MANAGEMENT
     Dosage: SEE IMAGE
     Route: 048
     Dates: start: 20061127
  7. FENTANYL (FENTANYL) 800UG [Suspect]
     Indication: BREAKTHROUGH PAIN
     Dosage: 800 UG, PRN, BUCCAL
     Route: 002
     Dates: start: 20050525
  8. TENORMIN [Suspect]
     Indication: HYPERTENSION
     Dosage: SEE IMAGE
     Route: 048
     Dates: start: 20030101, end: 20050907
  9. TENORMIN [Suspect]
     Indication: HYPERTENSION
     Dosage: SEE IMAGE
     Route: 048
     Dates: start: 20050907, end: 20051017
  10. TENORMIN [Suspect]
     Indication: HYPERTENSION
     Dosage: SEE IMAGE
     Route: 048
     Dates: start: 20051018
  11. LIORESAL [Suspect]
     Indication: MUSCLE SPASMS
     Dosage: 30 MG, QD, ORAL
     Route: 048
     Dates: start: 19950101
  12. KLONOPIN [Suspect]
     Indication: ANXIETY
     Dosage: SEE IMAGE
     Route: 048
     Dates: start: 20040101, end: 20050613
  13. KLONOPIN [Suspect]
     Indication: ANXIETY
     Dosage: SEE IMAGE
     Route: 048
     Dates: start: 20050613, end: 20051117
  14. KLONOPIN [Suspect]
     Indication: ANXIETY
     Dosage: SEE IMAGE
     Route: 048
     Dates: start: 20051117, end: 20051128
  15. KLONOPIN [Suspect]
     Indication: ANXIETY
     Dosage: SEE IMAGE
     Route: 048
     Dates: start: 20051128
  16. FLEXERIL [Suspect]
     Indication: MUSCLE SPASMS
     Dosage: 40 MG, UNK, UNK
  17. PROTONIX /01263201/ (PANTOPRAZOLE) [Concomitant]
  18. IBUPROFEN [Concomitant]
  19. TIZANIDINE HCL [Concomitant]
  20. ALBUTEROL /00139501/ (SALBUTAMOL) [Concomitant]
  21. TRAZODONE HCL [Concomitant]
  22. CELEXA [Concomitant]
  23. AMITRIPTYLINE HCL [Concomitant]
  24. TOPAMAX [Concomitant]
  25. PERCOCET /00446701/ (OXYCODONE HYDROCHLORIDE, OXYCODONE TEREPHTHALATE, [Concomitant]

REACTIONS (5)
  - HYPOTENSION [None]
  - MENINGOCOCCAL INFECTION [None]
  - MULTIPLE DRUG OVERDOSE ACCIDENTAL [None]
  - PNEUMONIA [None]
  - VIRUS SEROLOGY TEST POSITIVE [None]
